FAERS Safety Report 22790985 (Version 5)
Quarter: 2024Q2

REPORT INFORMATION
  Report Type: Spontaneous
  Country: US (occurrence: US)
  Receive Date: 20230806
  Receipt Date: 20240610
  Transmission Date: 20240715
  Serious: No
  Sender: FDA-Public Use
  Company Number: US-VIIV HEALTHCARE LIMITED-US2023AMR105308

PATIENT
  Age: 36 Year
  Sex: Male

DRUGS (13)
  1. RILPIVIRINE [Suspect]
     Active Substance: RILPIVIRINE
     Indication: HIV infection
     Dosage: UNK, 600MG/900MG EVERY 4-8 WEEKS
     Route: 030
     Dates: start: 20230309
  2. RILPIVIRINE [Suspect]
     Active Substance: RILPIVIRINE
     Dosage: UNK 600MG/900MG EVERY 4-8 WEEKS
     Route: 030
     Dates: start: 20230309
  3. RILPIVIRINE [Suspect]
     Active Substance: RILPIVIRINE
     Dosage: UNK, 600MG/900MG EVERY 4 TO 8 WEEKS
     Route: 030
  4. RILPIVIRINE [Suspect]
     Active Substance: RILPIVIRINE
     Dosage: UNK 600MG/900MG EVERY 4-8 WEELS
     Route: 030
  5. RILPIVIRINE [Suspect]
     Active Substance: RILPIVIRINE
     Dosage: UNK UNK, MO 600MG/900MG EVERY 4-8 WEEKS
     Route: 030
  6. RILPIVIRINE [Suspect]
     Active Substance: RILPIVIRINE
     Dosage: UNK UNK, MO 600MG/900MG EVERY 4-8 WEEKS
     Route: 030
  7. CABOTEGRAVIR [Suspect]
     Active Substance: CABOTEGRAVIR
     Indication: HIV infection
     Dosage: UNK, 600MG/900MG EVERY 4-8 WEEKS
     Route: 030
     Dates: start: 20230309
  8. CABOTEGRAVIR [Suspect]
     Active Substance: CABOTEGRAVIR
     Dosage: UNK, 600MG/900MG EVERY 4-8 WEEKS
     Route: 030
     Dates: start: 20230309
  9. CABOTEGRAVIR [Suspect]
     Active Substance: CABOTEGRAVIR
     Dosage: UNK, 600MG/900MG EVERY 4 TO 8 WEEKS
     Route: 030
     Dates: start: 20230309
  10. CABOTEGRAVIR [Suspect]
     Active Substance: CABOTEGRAVIR
     Dosage: UNK 600MG/900MG EVERY 4-8 WEELS
     Route: 030
  11. CABOTEGRAVIR [Suspect]
     Active Substance: CABOTEGRAVIR
     Dosage: UNK UNK, MO 600MG/900MG EVERY 4-8 WEEKS
     Route: 030
  12. CABOTEGRAVIR [Suspect]
     Active Substance: CABOTEGRAVIR
     Dosage: UNK UNK, MO 600MG/900MG EVERY 4-8 WEEKS
     Route: 030
  13. AZITHROMYCIN [Concomitant]
     Active Substance: AZITHROMYCIN
     Indication: Product used for unknown indication
     Dosage: UNK
     Route: 065

REACTIONS (5)
  - Injection site pain [Not Recovered/Not Resolved]
  - Arthralgia [Recovered/Resolved]
  - Nausea [Unknown]
  - Tension headache [Recovered/Resolved]
  - Onychoclasis [Not Recovered/Not Resolved]

NARRATIVE: CASE EVENT DATE: 20230727
